FAERS Safety Report 13693841 (Version 1)
Quarter: 2017Q2

REPORT INFORMATION
  Report Type: Spontaneous
  Country: US (occurrence: US)
  Receive Date: 20170626
  Receipt Date: 20170626
  Transmission Date: 20170830
  Serious: Yes (Disabling)
  Sender: FDA-Public Use
  Company Number: None

PATIENT
  Age: 31 Year
  Sex: Female
  Weight: 48.15 kg

DRUGS (4)
  1. CLONAZEPAM. [Suspect]
     Active Substance: CLONAZEPAM
     Indication: ANXIETY
  2. VITAMINS [Concomitant]
     Active Substance: VITAMINS
  3. ALOE VERA HAND SANITIZER [Suspect]
     Active Substance: ALCOHOL
     Indication: PRODUCT CONTAMINATION
  4. KLONOPIN [Concomitant]
     Active Substance: CLONAZEPAM

REACTIONS (4)
  - Metabolic disorder [None]
  - Manufacturing materials issue [None]
  - Throat irritation [None]
  - Eating disorder [None]

NARRATIVE: CASE EVENT DATE: 20170626
